FAERS Safety Report 7618507-2 (Version None)
Quarter: 2011Q3

REPORT INFORMATION
  Report Type: 
  Country: None (occurrence: None)
  Receive Date: 20110718
  Receipt Date: 20110713
  Transmission Date: 20111222
  Serious: Yes (Other)
  Sender: FDA-Public Use
  Company Number: US-PFIZER INC-2011159276

PATIENT
  Age: 12 Year
  Sex: Male

DRUGS (1)
  1. VIAGRA [Suspect]
     Dosage: UNK
     Route: 048

REACTIONS (4)
  - ERECTION INCREASED [None]
  - ACCIDENTAL DRUG INTAKE BY CHILD [None]
  - EJACULATION DISORDER [None]
  - PENILE PAIN [None]
